FAERS Safety Report 9584381 (Version 1)
Quarter: 2013Q4

REPORT INFORMATION
  Report Type: Spontaneous
  Country: US (occurrence: US)
  Receive Date: 20131002
  Receipt Date: 20131002
  Transmission Date: 20140711
  Serious: No
  Sender: FDA-Public Use
  Company Number: US-AMGEN-USASP2013052816

PATIENT
  Age: 50 Year
  Sex: Male
  Weight: 111 kg

DRUGS (6)
  1. ENBREL [Suspect]
     Indication: PRODUCT USED FOR UNKNOWN INDICATION
     Dosage: 50 MG, QWK
     Route: 058
  2. ZINC [Concomitant]
     Dosage: 10/6.5 UNK
  3. FISH OIL [Concomitant]
     Dosage: UNK
  4. VITAMIN B12                        /00056201/ [Concomitant]
     Dosage: 500 MUG, UNK
  5. CALCIUM 600 + D [Concomitant]
     Dosage: UNK
  6. OXYCODON [Concomitant]
     Dosage: 20 MG, UNK

REACTIONS (2)
  - Psoriatic arthropathy [Unknown]
  - Injection site pain [Unknown]
